FAERS Safety Report 22383273 (Version 1)
Quarter: 2023Q2

REPORT INFORMATION
  Report Type: Spontaneous
  Country: ES (occurrence: ES)
  Receive Date: 20230530
  Receipt Date: 20230530
  Transmission Date: 20230721
  Serious: Yes (Hospitalization)
  Sender: FDA-Public Use
  Company Number: None

PATIENT
  Sex: Female

DRUGS (2)
  1. ALPRAZOLAM [Suspect]
     Active Substance: ALPRAZOLAM
     Indication: Nervousness
     Dosage: 0.5 MILLIGRAM
     Route: 065
     Dates: start: 20230513, end: 20230513
  2. HALOPERIDOL [Suspect]
     Active Substance: HALOPERIDOL
     Indication: Nervousness
     Dosage: 5 DROPS HALOPERIDOL
     Route: 065
     Dates: start: 20230513, end: 20230513

REACTIONS (2)
  - Coma [Recovered/Resolved]
  - Medication error [Recovered/Resolved]

NARRATIVE: CASE EVENT DATE: 20230513
